FAERS Safety Report 8813062 (Version 1)
Quarter: 2012Q4

REPORT INFORMATION
  Report Type: 
  Country: US (occurrence: US)
  Receive Date: 20120927
  Receipt Date: 20120927
  Transmission Date: 20130627
  Serious: No
  Sender: FDA-Public Use
  Company Number: US-ASTRAZENECA-2012SE71415

PATIENT
  Age: 66 Year
  Sex: Female

DRUGS (2)
  1. NEXIUM [Suspect]
     Route: 048
  2. ADVAIR [Concomitant]

REACTIONS (5)
  - Gastritis [Unknown]
  - Hiatus hernia [Unknown]
  - Weight decreased [Unknown]
  - Vomiting [Unknown]
  - Drug dose omission [Unknown]
